FAERS Safety Report 7981242-5 (Version None)
Quarter: 2011Q4

REPORT INFORMATION
  Report Type: 
  Country: None (occurrence: None)
  Receive Date: 20111215
  Receipt Date: 20111213
  Transmission Date: 20120403
  Serious: No
  Sender: FDA-Public Use
  Company Number: US-PFIZER INC-2011303868

PATIENT
  Sex: Male

DRUGS (3)
  1. LIPITOR [Suspect]
     Indication: ARTERIAL OCCLUSIVE DISEASE
     Dosage: UNK
     Dates: start: 20060101
  2. LIPITOR [Suspect]
     Dosage: UNK
  3. SIMVASTATIN [Suspect]
     Indication: ARTERIAL OCCLUSIVE DISEASE
     Dosage: UNK

REACTIONS (3)
  - HEARING IMPAIRED [None]
  - ABDOMINAL DISCOMFORT [None]
  - NAUSEA [None]
